FAERS Safety Report 4366661-0 (Version None)
Quarter: 2004Q2

REPORT INFORMATION
  Report Type: 
  Country: None (occurrence: None)
  Receive Date: 20040527
  Receipt Date: 20040304
  Transmission Date: 20050107
  Serious: No
  Sender: FDA-Public Use
  Company Number: US-GLAXOSMITHKLINE-A0501223A

PATIENT
  Age: 55 Year
  Sex: Male

DRUGS (1)
  1. AVODART [Suspect]
     Indication: BENIGN PROSTATIC HYPERPLASIA
     Dosage: .5MG PER DAY
     Route: 048
     Dates: start: 20031201

REACTIONS (4)
  - ANXIETY [None]
  - HEART RATE INCREASED [None]
  - PAIN IN EXTREMITY [None]
  - SENSORY DISTURBANCE [None]
